FAERS Safety Report 8812596 (Version 2)
Quarter: 2012Q4

REPORT INFORMATION
  Report Type: 
  Country: US (occurrence: US)
  Receive Date: 20120927
  Receipt Date: 20121204
  Transmission Date: 20130627
  Serious: Yes (Hospitalization, Other)
  Sender: FDA-Public Use
  Company Number: US-009507513-1103USA00947

PATIENT

DRUGS (8)
  1. FOSAMAX [Suspect]
     Indication: OSTEOPOROSIS
     Dosage: 70 mg, UNK
     Route: 048
     Dates: start: 20040617, end: 20100825
  2. FOSAMAX [Suspect]
     Route: 048
     Dates: start: 200803
  3. ALENDRONATE SODIUM [Suspect]
  4. SYNTHROID [Concomitant]
     Indication: HYPOTHYROIDISM
  5. SYNTHROID [Concomitant]
     Indication: HYPOPARATHYROIDISM
  6. LEVOTHYROXINE SODIUM [Concomitant]
     Indication: HYPOTHYROIDISM
  7. LEVOTHYROXINE SODIUM [Concomitant]
     Indication: HYPOPARATHYROIDISM
  8. LOVASTATIN [Concomitant]
     Indication: BLOOD CHOLESTEROL INCREASED

REACTIONS (19)
  - Femur fracture [Unknown]
  - Femur fracture [Unknown]
  - Removal of internal fixation [Unknown]
  - Intramedullary rod insertion [Unknown]
  - Bronchitis [Unknown]
  - Fracture [Unknown]
  - Sinus disorder [Unknown]
  - Hypersensitivity [Unknown]
  - Impaired healing [Unknown]
  - Arthritis [Unknown]
  - Wrist fracture [Unknown]
  - Vitamin D deficiency [Unknown]
  - Blood pressure increased [Unknown]
  - Oedema peripheral [Unknown]
  - Pain in extremity [Unknown]
  - Pain in extremity [Unknown]
  - Intramedullary rod insertion [Unknown]
  - Fracture nonunion [Unknown]
  - Fracture nonunion [Unknown]
